FAERS Safety Report 6143337-0 (Version None)
Quarter: 2009Q2

REPORT INFORMATION
  Report Type: 
  Country: None (occurrence: None)
  Receive Date: 20090403
  Receipt Date: 20090325
  Transmission Date: 20091009
  Serious: Yes (Hospitalization)
  Sender: FDA-Public Use
  Company Number: B0567253A

PATIENT
  Sex: Male

DRUGS (4)
  1. MELPHALAN [Suspect]
     Indication: MULTIPLE MYELOMA
     Dosage: 12MG PER DAY
     Route: 048
     Dates: start: 20080321
  2. PREDNISONE [Suspect]
     Indication: MULTIPLE MYELOMA
     Dosage: 130MG PER DAY
     Route: 048
     Dates: start: 20080321
  3. LENALIDOMIDE [Suspect]
     Indication: MULTIPLE MYELOMA
     Route: 048
     Dates: start: 20080321
  4. POTASSIUM CHLORIDE [Concomitant]
     Dosage: 10CC PER DAY

REACTIONS (4)
  - HYPOCALCAEMIA [None]
  - HYPOKALAEMIA [None]
  - NEUTROPENIA [None]
  - THROMBOCYTOPENIA [None]
